FAERS Safety Report 6975577-2 (Version None)
Quarter: 2010Q3

REPORT INFORMATION
  Report Type: 
  Country: None (occurrence: None)
  Receive Date: 20100910
  Receipt Date: 20090323
  Transmission Date: 20110219
  Serious: No
  Sender: FDA-Public Use
  Company Number: US-WYE-H08688809

PATIENT
  Sex: Female
  Weight: 59.93 kg

DRUGS (8)
  1. PRISTIQ [Suspect]
     Indication: DEPRESSION
     Route: 048
     Dates: start: 20090313
  2. ASPIRIN [Concomitant]
  3. LUNESTA [Concomitant]
  4. CRESTOR [Concomitant]
  5. CLONAZEPAM [Concomitant]
  6. ELMIRON [Concomitant]
  7. COZAAR [Concomitant]
  8. OSCAL [Concomitant]

REACTIONS (8)
  - ABDOMINAL PAIN LOWER [None]
  - ANXIETY [None]
  - CONFUSIONAL STATE [None]
  - DECREASED APPETITE [None]
  - DRY MOUTH [None]
  - FATIGUE [None]
  - PALPITATIONS [None]
  - POLLAKIURIA [None]
